FAERS Safety Report 17107872 (Version 2)
Quarter: 2019Q4

REPORT INFORMATION
  Report Type: Report from Study
  Country: AU (occurrence: AU)
  Receive Date: 20191203
  Receipt Date: 20191223
  Transmission Date: 20200122
  Serious: Yes (Hospitalization)
  Sender: FDA-Public Use
  Company Number: AU-BEIGENE AUS PTY LTD-BGN-2019-001844

PATIENT

DRUGS (8)
  1. BGB-3111 [Suspect]
     Active Substance: ZANUBRUTINIB
     Indication: NODAL MARGINAL ZONE B-CELL LYMPHOMA
     Dosage: 160 MILLIGRAM, BD
     Route: 048
     Dates: start: 20180807, end: 20191015
  2. PERINDOPRIL [Concomitant]
     Active Substance: PERINDOPRIL
     Indication: VASCULAR GRAFT
     Dosage: 5 MILLIGRAM, QD
     Route: 048
     Dates: start: 2013
  3. VENTOLIN [Concomitant]
     Active Substance: ALBUTEROL SULFATE
     Indication: ASTHMA
     Dosage: 100 MICROGRAM, PRN
     Dates: start: 1967
  4. ASPIRIN. [Concomitant]
     Active Substance: ASPIRIN
     Indication: VASCULAR GRAFT
     Dosage: 100 MILLIGRAM, QD
     Route: 048
     Dates: start: 2013
  5. AMLODIPINE [Concomitant]
     Active Substance: AMLODIPINE BESYLATE
     Indication: HYPERTENSION
     Dosage: 5 MILLIGRAM, QD
     Route: 048
     Dates: start: 2011
  6. LIPITOR [Concomitant]
     Active Substance: ATORVASTATIN CALCIUM
     Indication: HYPERCHOLESTEROLAEMIA
     Dosage: 40 MILLIGRAM, N
     Route: 048
     Dates: start: 2011
  7. BGB-3111 [Suspect]
     Active Substance: ZANUBRUTINIB
     Dosage: 160MG BID
     Route: 048
     Dates: start: 20191022
  8. PREDNISOLONE. [Concomitant]
     Active Substance: PREDNISOLONE
     Indication: RASH
     Dosage: 5 MILLIGRAM, QD
     Route: 048
     Dates: start: 20191003

REACTIONS (1)
  - Groin abscess [Recovered/Resolved]

NARRATIVE: CASE EVENT DATE: 20191015
